FAERS Safety Report 4503892-0 (Version None)
Quarter: 2004Q4

REPORT INFORMATION
  Report Type: 
  Country: None (occurrence: None)
  Receive Date: 20041115
  Receipt Date: 20041105
  Transmission Date: 20050328
  Serious: Yes (Life-Threatening, Hospitalization)
  Sender: FDA-Public Use
  Company Number: 2004089436

PATIENT
  Age: 63 Year
  Sex: Female
  Weight: 68 kg

DRUGS (5)
  1. SULFASALAZINE [Suspect]
     Indication: POLYARTHRITIS
     Dosage: 1 GRAM (1 GRAM , 1 IN 1 D), ORAL
     Route: 048
     Dates: start: 20030812, end: 20030910
  2. ACETAMINOPHEN [Concomitant]
  3. CODEINE PHOPHATE           (CODEINE PHOSPHATE) [Concomitant]
  4. CELECOXIB            (CELECOXIB) [Concomitant]
  5. NAPROXEN [Concomitant]

REACTIONS (1)
  - DRUG RASH WITH EOSINOPHILIA AND SYSTEMIC SYMPTOMS [None]
